FAERS Safety Report 9422091 (Version 2)
Quarter: 2013Q3

REPORT INFORMATION
  Report Type: Report from Study
  Country: PH (occurrence: PH)
  Receive Date: 20130726
  Receipt Date: 20130813
  Transmission Date: 20140515
  Serious: Yes (Death, Hospitalization)
  Sender: FDA-Public Use
  Company Number: PH-GENZYME-RENA-1001895

PATIENT
  Age: 74 Year
  Sex: Female
  Weight: 66 kg

DRUGS (8)
  1. RENVELA [Suspect]
     Indication: HYPERPHOSPHATAEMIA
     Dosage: 800 MG, TID
     Route: 065
     Dates: start: 20130121
  2. TELMISARTAN [Concomitant]
     Indication: HYPERTENSION
     Dosage: 40 MG, QD
     Route: 065
     Dates: start: 201106
  3. FELODIPINE [Concomitant]
     Indication: HYPERTENSION
     Dosage: 2.5 G, QD
     Route: 065
     Dates: start: 201106
  4. COUMADIN [Concomitant]
     Indication: AORTIC VALVE REPLACEMENT
     Dosage: UNK (DOSE ADJUSTMENT)
     Route: 065
     Dates: start: 200711
  5. SITAGLIPTIN [Concomitant]
     Indication: DIABETES MELLITUS
     Dosage: 100 MG, QD
     Route: 065
     Dates: start: 2009
  6. GLICLAZIDE [Concomitant]
     Indication: DIABETES MELLITUS
     Dosage: QD
     Route: 065
     Dates: start: 2008
  7. ROSUVASTATIN [Concomitant]
     Indication: HYPERLIPIDAEMIA
     Dosage: 20 MG, QD
     Route: 065
     Dates: start: 2008
  8. ROSUVASTATIN [Concomitant]
     Indication: DIABETES MELLITUS

REACTIONS (2)
  - Haemorrhagic stroke [Unknown]
  - Death [Fatal]
